FAERS Safety Report 8390199-7 (Version None)
Quarter: 2012Q2

REPORT INFORMATION
  Report Type: 
  Country: None (occurrence: None)
  Receive Date: 20120529
  Receipt Date: 20120515
  Transmission Date: 20120825
  Serious: Yes (Hospitalization, Other)
  Sender: FDA-Public Use
  Company Number: US-MYLANLABS-2009AC000149

PATIENT
  Sex: Male
  Weight: 104.33 kg

DRUGS (28)
  1. PAROXETINE [Concomitant]
  2. TAGAMET [Concomitant]
  3. QUINIDINE HCL [Concomitant]
  4. METHYLPREDNISOLONE [Concomitant]
  5. CLOTRIMAZOLE AND BETAMETHASONE DIPROPIONATE [Concomitant]
  6. SILVER SULFADIAZIN [Concomitant]
  7. ELAVIL [Concomitant]
  8. PAROXETINE HCL [Concomitant]
  9. AXID /00867001/ [Concomitant]
  10. FLECAINIDE ACETATE [Concomitant]
  11. CLOTRIMAZOLE [Concomitant]
  12. LEVITRA [Concomitant]
  13. NEURONTIN [Concomitant]
  14. CLONAZEPAM [Concomitant]
  15. DEPAKOTE [Concomitant]
  16. ASACOL [Concomitant]
  17. ATIVAN [Concomitant]
  18. CARDIZEM CD [Concomitant]
     Route: 048
  19. SOTALOL HCL [Concomitant]
  20. CALAN /00741901/ [Concomitant]
  21. PREVACID [Concomitant]
  22. PAXIL [Concomitant]
  23. PROSTAGLANDINS [Concomitant]
  24. SYNTHROID [Concomitant]
  25. PROCAINAMIDE [Concomitant]
  26. DIGOXIN [Suspect]
     Route: 048
     Dates: start: 19911102, end: 20090529
  27. LORAZEPAM [Concomitant]
  28. ASPIRIN [Concomitant]

REACTIONS (53)
  - ARRHYTHMIA [None]
  - SUICIDAL IDEATION [None]
  - ASTHENIA [None]
  - DEATH OF RELATIVE [None]
  - FATIGUE [None]
  - HYPOACUSIS [None]
  - HYPOTHYROIDISM [None]
  - NERVOUSNESS [None]
  - SCROTAL MASS [None]
  - TINNITUS [None]
  - ILL-DEFINED DISORDER [None]
  - ANXIETY [None]
  - THROAT TIGHTNESS [None]
  - MALAISE [None]
  - PHOTOPHOBIA [None]
  - PSYCHOGENIC ERECTILE DYSFUNCTION [None]
  - VERTIGO [None]
  - BRADYARRHYTHMIA [None]
  - BACK PAIN [None]
  - ABDOMINAL PAIN [None]
  - ABDOMINAL PAIN UPPER [None]
  - DISTURBANCE IN ATTENTION [None]
  - DIZZINESS [None]
  - ELECTROCARDIOGRAM ABNORMAL [None]
  - LUPUS-LIKE SYNDROME [None]
  - TACHYCARDIA [None]
  - VARICOCELE [None]
  - GASTROOESOPHAGEAL REFLUX DISEASE [None]
  - ATRIAL FIBRILLATION [None]
  - PALPITATIONS [None]
  - PANIC REACTION [None]
  - CHEST DISCOMFORT [None]
  - FEELING OF DESPAIR [None]
  - MIGRAINE [None]
  - SINUS BRADYCARDIA [None]
  - SPERMATOCELE [None]
  - VENTRICULAR ASYSTOLE [None]
  - CHEST PAIN [None]
  - FEELINGS OF WORTHLESSNESS [None]
  - STRESS [None]
  - INTERVERTEBRAL DISC DISORDER [None]
  - DEPRESSION [None]
  - DYSPNOEA [None]
  - NAUSEA [None]
  - NUCLEAR MAGNETIC RESONANCE IMAGING ABNORMAL [None]
  - PANIC DISORDER [None]
  - OVERDOSE [None]
  - BRADYCARDIA [None]
  - DEHYDRATION [None]
  - INJURY [None]
  - NON-CARDIAC CHEST PAIN [None]
  - ANGER [None]
  - HEADACHE [None]
